FAERS Safety Report 12707600 (Version 3)
Quarter: 2017Q1

REPORT INFORMATION
  Report Type: Report from Study
  Country: US (occurrence: US)
  Receive Date: 20160901
  Receipt Date: 20170130
  Transmission Date: 20170428
  Serious: Yes (Hospitalization)
  Sender: FDA-Public Use
  Company Number: US-ACTELION-A-US2016-134014

PATIENT
  Age: 74 Year
  Sex: Female

DRUGS (2)
  1. TRACLEER [Suspect]
     Active Substance: BOSENTAN
     Indication: PULMONARY ARTERIAL HYPERTENSION
     Dosage: 125 MG, BID
     Route: 048
     Dates: start: 20100716
  2. VERAPAMIL [Concomitant]
     Active Substance: VERAPAMIL HYDROCHLORIDE

REACTIONS (11)
  - Cystitis [Unknown]
  - Tremor [Unknown]
  - Fall [Unknown]
  - Urinary retention [Unknown]
  - Heart rate increased [Not Recovered/Not Resolved]
  - Balance disorder [Unknown]
  - Cardiac disorder [Unknown]
  - Cellulitis [Unknown]
  - Parkinson^s disease [Unknown]
  - Walking disability [Unknown]
  - Fear of falling [Unknown]
